FAERS Safety Report 17319406 (Version 10)
Quarter: 2021Q1

REPORT INFORMATION
  Report Type: Report from Study
  Country: None (occurrence: NL)
  Receive Date: 20200124
  Receipt Date: 20210120
  Transmission Date: 20210419
  Serious: Yes (Hospitalization, Other)
  Sender: FDA-Public Use
  Company Number: NL-ABBVIE-19S-114-2792310-00

PATIENT
  Age: 75 Year
  Sex: Male
  Weight: 78 kg

DRUGS (10)
  1. MADOPAR [Concomitant]
     Active Substance: BENSERAZIDE HYDROCHLORIDE\LEVODOPA
     Indication: PARKINSON^S DISEASE
  2. DUODOPA [Suspect]
     Active Substance: CARBIDOPA\LEVODOPA
     Dosage: MD: 7.0; CD: 4.2; ED: 2.5; CND: 3.5; END: 2.5
     Route: 050
  3. DUODOPA [Suspect]
     Active Substance: CARBIDOPA\LEVODOPA
     Dosage: NIGHT DOSE: 0ML, CND: 4.6ML/H, ED: 2.0ML?REMAINS AT 24 HOURS
     Route: 050
  4. DUODOPA [Suspect]
     Active Substance: CARBIDOPA\LEVODOPA
     Dosage: MD: 7.5, CD: 4.6, ED: 2.5, CND: 4.0, END: 2.0
     Route: 050
     Dates: start: 20190514
  5. MACROGOL [Concomitant]
     Active Substance: POLYETHYLENE GLYCOLS
     Indication: ABNORMAL FAECES
  6. DUODOPA [Suspect]
     Active Substance: CARBIDOPA\LEVODOPA
     Indication: PARKINSON^S DISEASE
     Dosage: MD: 11.0, CD: 4.2, ED: 2.0; 16 HOUR ADMINISTRATION
     Route: 050
     Dates: start: 20190513, end: 20190513
  7. DUODOPA [Suspect]
     Active Substance: CARBIDOPA\LEVODOPA
     Dosage: MD: 7.5ML, CD:5.5ML/H, ED: 3.3ML
     Route: 050
  8. DUODOPA [Suspect]
     Active Substance: CARBIDOPA\LEVODOPA
     Dosage: MD: 7.5ML, CD: 4.9ML/H, ED: 3.3ML?REMAINED AT 16 HOURS
     Route: 050
  9. NEUPRO [Concomitant]
     Active Substance: ROTIGOTINE
     Indication: PRODUCT USED FOR UNKNOWN INDICATION
  10. DUODOPA [Suspect]
     Active Substance: CARBIDOPA\LEVODOPA
     Dosage: MD: 7.5 ML, CD: 4.6 ML/H, ED: 2.5 ML, CND: 4.0 ML/H, END:2.0ML.?REMAINS AT 24 HOURS
     Route: 050

REACTIONS (49)
  - Cognitive disorder [Not Recovered/Not Resolved]
  - Peripheral venous disease [Not Recovered/Not Resolved]
  - Urinary incontinence [Not Recovered/Not Resolved]
  - Muscle rigidity [Not Recovered/Not Resolved]
  - Daydreaming [Not Recovered/Not Resolved]
  - Oedema peripheral [Not Recovered/Not Resolved]
  - Stoma site discharge [Not Recovered/Not Resolved]
  - Loss of personal independence in daily activities [Not Recovered/Not Resolved]
  - Device difficult to use [Not Recovered/Not Resolved]
  - Fear of falling [Not Recovered/Not Resolved]
  - Depressed mood [Not Recovered/Not Resolved]
  - Poor quality sleep [Not Recovered/Not Resolved]
  - Disturbance in attention [Not Recovered/Not Resolved]
  - Stoma site pain [Not Recovered/Not Resolved]
  - Therapeutic product effect incomplete [Not Recovered/Not Resolved]
  - Hallucination [Recovering/Resolving]
  - Amnesia [Unknown]
  - Abnormal dreams [Recovered/Resolved]
  - Fatigue [Not Recovered/Not Resolved]
  - Dyskinesia [Not Recovered/Not Resolved]
  - Unevaluable event [Not Recovered/Not Resolved]
  - Middle insomnia [Not Recovered/Not Resolved]
  - Muscle rigidity [Recovered/Resolved]
  - Tremor [Recovered/Resolved]
  - Bradykinesia [Not Recovered/Not Resolved]
  - Impaired quality of life [Unknown]
  - Posture abnormal [Not Recovered/Not Resolved]
  - Medication error [Recovered/Resolved]
  - Disorientation [Not Recovered/Not Resolved]
  - Rash [Not Recovered/Not Resolved]
  - Abnormal dreams [Not Recovered/Not Resolved]
  - Inguinal hernia [Recovered/Resolved]
  - Mobility decreased [Not Recovered/Not Resolved]
  - Bradyphrenia [Not Recovered/Not Resolved]
  - Memory impairment [Not Recovered/Not Resolved]
  - Restless legs syndrome [Not Recovered/Not Resolved]
  - Balance disorder [Not Recovered/Not Resolved]
  - Fibroma [Not Recovered/Not Resolved]
  - Nocturia [Not Recovered/Not Resolved]
  - Freezing phenomenon [Recovered/Resolved with Sequelae]
  - Intentional product misuse [Unknown]
  - Cardiac failure [Not Recovered/Not Resolved]
  - Frustration tolerance decreased [Recovered/Resolved]
  - Feeling abnormal [Not Recovered/Not Resolved]
  - Hallucination, auditory [Not Recovered/Not Resolved]
  - Weight increased [Not Recovered/Not Resolved]
  - On and off phenomenon [Recovered/Resolved]
  - Parkinson^s disease [Not Recovered/Not Resolved]
  - Dizziness [Not Recovered/Not Resolved]

NARRATIVE: CASE EVENT DATE: 2019
